FAERS Safety Report 11765483 (Version 1)
Quarter: 2015Q4

REPORT INFORMATION
  Report Type: Spontaneous
  Country: US (occurrence: US)
  Receive Date: 20151120
  Receipt Date: 20151120
  Transmission Date: 20160304
  Serious: No
  Sender: FDA-Public Use
  Company Number: US-ELI_LILLY_AND_COMPANY-US201404008989

PATIENT
  Sex: Female

DRUGS (5)
  1. HUMULIN R [Concomitant]
     Active Substance: INSULIN HUMAN
  2. FORTEO [Suspect]
     Active Substance: TERIPARATIDE
     Indication: OSTEOPOROSIS
     Dosage: UNK, UNKNOWN
     Route: 065
     Dates: start: 20140315
  3. VITAMIN D [Concomitant]
     Active Substance: CHOLECALCIFEROL
  4. HUMULIN N [Concomitant]
     Active Substance: INSULIN HUMAN
  5. CALCIUM [Concomitant]
     Active Substance: CALCIUM

REACTIONS (4)
  - Balance disorder [Unknown]
  - Depression [Unknown]
  - Dizziness [Unknown]
  - Fatigue [Unknown]

NARRATIVE: CASE EVENT DATE: 20140315
